FAERS Safety Report 6225494-0 (Version None)
Quarter: 2009Q2

REPORT INFORMATION
  Report Type: 
  Country: None (occurrence: None)
  Receive Date: 20090612
  Receipt Date: 20090421
  Transmission Date: 20091009
  Serious: No
  Sender: FDA-Public Use
  Company Number: US-ABBOTT-09P-163-0569361-00

PATIENT
  Sex: Female
  Weight: 33.596 kg

DRUGS (2)
  1. HUMIRA [Suspect]
     Indication: JUVENILE ARTHRITIS
     Dates: start: 20090328
  2. EMLA [Concomitant]
     Indication: DRUG USE FOR UNKNOWN INDICATION
     Dosage: AT INJECTION SITE 1 HOUR PRIOR TO INJECTION

REACTIONS (1)
  - INJECTION SITE IRRITATION [None]
